FAERS Safety Report 4342509-5 (Version None)
Quarter: 2004Q2

REPORT INFORMATION
  Report Type: 
  Country: None (occurrence: None)
  Receive Date: 20040414
  Receipt Date: 20040402
  Transmission Date: 20050107
  Serious: Yes (Life-Threatening, Hospitalization)
  Sender: FDA-Public Use
  Company Number: HQWYE339802APR04

PATIENT
  Sex: Male

DRUGS (2)
  1. BENEFIX [Suspect]
     Indication: FACTOR IX DEFICIENCY
     Dosage: SEE IMAGE
     Route: 042
  2. BENEFIX [Suspect]
     Indication: HAEMORRHAGE
     Dosage: SEE IMAGE
     Route: 042

REACTIONS (32)
  - ACIDOSIS [None]
  - ANAESTHETIC COMPLICATION [None]
  - CATHETER SEPSIS [None]
  - CATHETER SITE HAEMORRHAGE [None]
  - CATHETER SITE INFECTION [None]
  - CEREBRAL HAEMORRHAGE NEONATAL [None]
  - CONVULSION NEONATAL [None]
  - DEEP VEIN THROMBOSIS [None]
  - DEVELOPMENTAL DELAY [None]
  - ENTEROCOCCAL INFECTION [None]
  - EPISTAXIS [None]
  - GRAND MAL CONVULSION [None]
  - HYPERCOAGULATION [None]
  - INTRA-ABDOMINAL HAEMORRHAGE [None]
  - JUGULAR VEIN THROMBOSIS [None]
  - LARYNGEAL OEDEMA [None]
  - LOCAL SWELLING [None]
  - MEDICAL DEVICE COMPLICATION [None]
  - MENTAL STATUS CHANGES POSTOPERATIVE [None]
  - MOUTH HAEMORRHAGE [None]
  - NEONATAL RESPIRATORY DISTRESS SYNDROME [None]
  - OBSTRUCTIVE AIRWAYS DISORDER [None]
  - OEDEMA PERIPHERAL [None]
  - PLEURAL EFFUSION [None]
  - PNEUMONIA [None]
  - RESPIRATORY ARREST [None]
  - SUBCLAVIAN VEIN THROMBOSIS [None]
  - SUPERIOR SAGITTAL SINUS THROMBOSIS [None]
  - SUPERIOR VENA CAVAL OCCLUSION [None]
  - SWELLING [None]
  - TRACHEITIS [None]
  - VENA CAVA THROMBOSIS [None]
